FAERS Safety Report 6256953-2 (Version None)
Quarter: 2009Q3

REPORT INFORMATION
  Report Type: 
  Country: None (occurrence: None)
  Receive Date: 20090706
  Receipt Date: 20090624
  Transmission Date: 20100115
  Serious: Yes (Other)
  Sender: FDA-Public Use
  Company Number: DK-NOVOPROD-288752

PATIENT
  Age: 61 Year
  Sex: Male

DRUGS (1)
  1. NORDITROPIN NORDIFLEX [Suspect]
     Indication: DRUG USE FOR UNKNOWN INDICATION
     Dosage: .2 MG, QD
     Dates: start: 20020901

REACTIONS (1)
  - MALIGNANT MELANOMA [None]
